FAERS Safety Report 10771655 (Version 1)
Quarter: 2015Q1

REPORT INFORMATION
  Report Type: Spontaneous
  Country: US (occurrence: US)
  Receive Date: 20150206
  Receipt Date: 20150206
  Transmission Date: 20150721
  Serious: No
  Sender: FDA-Public Use
  Company Number: US-ACORDA-ACO_104310_2014

PATIENT
  Sex: Male
  Weight: 92.63 kg

DRUGS (3)
  1. AVONEX [Concomitant]
     Active Substance: INTERFERON BETA-1A
     Indication: PRODUCT USED FOR UNKNOWN INDICATION
     Dosage: UNK
     Route: 030
  2. AMPYRA [Suspect]
     Active Substance: DALFAMPRIDINE
     Indication: GAIT DISTURBANCE
     Dosage: UNK MG, UNK
     Route: 065
     Dates: start: 201308, end: 201311
  3. METHYLPREDNISOLONE. [Concomitant]
     Active Substance: METHYLPREDNISOLONE
     Indication: PRODUCT USED FOR UNKNOWN INDICATION
     Dosage: UNK, MONTHLY
     Route: 042

REACTIONS (5)
  - Constipation [Not Recovered/Not Resolved]
  - Paralysis [Unknown]
  - Muscular weakness [Unknown]
  - Drug ineffective [Unknown]
  - Functional gastrointestinal disorder [Unknown]
